FAERS Safety Report 21171173 (Version 1)
Quarter: 2022Q3

REPORT INFORMATION
  Report Type: Spontaneous
  Country: US (occurrence: None)
  Receive Date: 20220803
  Receipt Date: 20220803
  Transmission Date: 20221027
  Serious: Yes (Hospitalization)
  Sender: FDA-Public Use
  Company Number: None

PATIENT
  Age: 20 Year
  Sex: Female
  Weight: 55 kg

DRUGS (2)
  1. BEBTELOVIMAB [Suspect]
     Active Substance: BEBTELOVIMAB
     Indication: COVID-19 treatment
  2. BEBTELOVIMAB [Concomitant]
     Active Substance: BEBTELOVIMAB
     Dates: start: 20220802, end: 20220802

REACTIONS (6)
  - Wheezing [None]
  - Dyspnoea [None]
  - Dysphagia [None]
  - Dizziness [None]
  - Tachypnoea [None]
  - Angioedema [None]

NARRATIVE: CASE EVENT DATE: 20220802
